FAERS Safety Report 17573666 (Version 1)
Quarter: 2020Q1

REPORT INFORMATION
  Report Type: Spontaneous
  Country: CA (occurrence: CA)
  Receive Date: 20200323
  Receipt Date: 20200323
  Transmission Date: 20200409
  Serious: Yes (Other)
  Sender: FDA-Public Use
  Company Number: NVSC2020CA081107

PATIENT
  Age: 60 Year
  Sex: Male

DRUGS (12)
  1. COSENTYX [Suspect]
     Active Substance: SECUKINUMAB
     Indication: PSORIATIC ARTHROPATHY
     Dosage: 300 MG, QMO
     Route: 058
  2. CANNABIS SATIVA [Concomitant]
     Active Substance: CANNABIS SATIVA FLOWERING TOP
     Indication: PAIN
     Dosage: UNK
     Route: 065
  3. CIPRALEX [Concomitant]
     Active Substance: ESCITALOPRAM OXALATE
     Indication: PRODUCT USED FOR UNKNOWN INDICATION
     Dosage: UNK UNK, QD
     Route: 065
  4. ROSUVASTATIN CALCIUM. [Concomitant]
     Active Substance: ROSUVASTATIN CALCIUM
     Indication: PRODUCT USED FOR UNKNOWN INDICATION
     Dosage: UNK UNK, QD
     Route: 065
  5. COSENTYX [Suspect]
     Active Substance: SECUKINUMAB
     Dosage: 300 MG, UNKNOWN
     Route: 058
  6. ATENOLOL. [Suspect]
     Active Substance: ATENOLOL
     Indication: PSORIATIC ARTHROPATHY
     Dosage: UNK UNK, QD
     Route: 065
  7. ACLIDINIUM BROMIDE. [Concomitant]
     Active Substance: ACLIDINIUM BROMIDE
     Indication: WHEEZING
     Dosage: UNK
     Route: 065
  8. PREDNISONE. [Concomitant]
     Active Substance: PREDNISONE
     Indication: PRODUCT USED FOR UNKNOWN INDICATION
     Dosage: 50 MG, QD
     Route: 065
  9. ASPIRIN. [Concomitant]
     Active Substance: ASPIRIN
     Indication: PRODUCT USED FOR UNKNOWN INDICATION
     Dosage: 1 DF, QD
     Route: 065
  10. CELEBREX [Concomitant]
     Active Substance: CELECOXIB
     Indication: PRODUCT USED FOR UNKNOWN INDICATION
     Dosage: UNK, QD
     Route: 065
  11. METHOTREXATE. [Suspect]
     Active Substance: METHOTREXATE
     Indication: PRODUCT USED FOR UNKNOWN INDICATION
     Dosage: UNK
     Route: 065
  12. LEFLUNOMIDE. [Concomitant]
     Active Substance: LEFLUNOMIDE
     Indication: PRODUCT USED FOR UNKNOWN INDICATION
     Dosage: UNK
     Route: 065

REACTIONS (17)
  - Malaise [Recovered/Resolved]
  - Nasopharyngitis [Recovered/Resolved]
  - Head discomfort [Recovered/Resolved]
  - Lower respiratory tract infection [Recovered/Resolved]
  - Chest discomfort [Recovered/Resolved]
  - Musculoskeletal discomfort [Recovered/Resolved]
  - Arthralgia [Recovered/Resolved]
  - Cough [Recovered/Resolved]
  - Arthritis [Recovered/Resolved]
  - Prescribed overdose [Recovered/Resolved]
  - Pain in extremity [Recovered/Resolved]
  - Chest pain [Recovered/Resolved]
  - Oropharyngeal pain [Recovered/Resolved]
  - Product packaging issue [Recovered/Resolved]
  - Productive cough [Recovered/Resolved]
  - Rhinorrhoea [Recovered/Resolved]
  - Wheezing [Recovered/Resolved]
